FAERS Safety Report 13795336 (Version 1)
Quarter: 2017Q3

REPORT INFORMATION
  Report Type: Spontaneous
  Country: NL (occurrence: NL)
  Receive Date: 20170726
  Receipt Date: 20170726
  Transmission Date: 20171127
  Serious: Yes (Other)
  Sender: FDA-Public Use
  Company Number: NL-MYLANLABS-2017M1043432

PATIENT

DRUGS (7)
  1. SPIRONOLACTON TABLET 12,5MG DMB [Concomitant]
     Dosage: 1X
     Route: 048
  2. FENPROCOUMON SANDOZ TABLET 3MG [Concomitant]
     Dosage: DEPENDING LIST THROMBOSE
     Route: 048
  3. REVATIO TABLET FILMOMHULD 20MG [Concomitant]
     Dosage: 3X PER DAY TABLET
     Route: 048
  4. IRBESARTAN ACCORD TABLET FILMOMHULD 75MG [Concomitant]
     Dosage: 1X
     Route: 048
  5. SOTALOL HCL SANDOZ TABLET 80MG [Concomitant]
     Dosage: 3X 0.5 TABLET PER DAY
     Route: 048
  6. AMLODIPINE SANDOZ TABLET 5MG (ALS BESILAAT) [Concomitant]
     Dosage: 0.5 TABLET PER DAY
     Route: 048
  7. METOPROLOL MYLAN [Suspect]
     Active Substance: METOPROLOL
     Indication: ARRHYTHMIA
     Dosage: 1X PER DAY 1 UNIT
     Route: 048
     Dates: start: 201705, end: 20170607

REACTIONS (2)
  - Arrhythmia [Recovered/Resolved]
  - Therapeutic response unexpected [Recovered/Resolved]

NARRATIVE: CASE EVENT DATE: 20170602
